FAERS Safety Report 12743879 (Version 1)
Quarter: 2016Q3

REPORT INFORMATION
  Report Type: Report from Study
  Country: US (occurrence: US)
  Receive Date: 20160914
  Receipt Date: 20160914
  Transmission Date: 20161109
  Serious: Yes (Other)
  Sender: FDA-Public Use
  Company Number: US-ABBVIE-16K-163-1722659-00

PATIENT
  Sex: Female

DRUGS (1)
  1. HUMIRA [Suspect]
     Active Substance: ADALIMUMAB
     Indication: RHEUMATOID ARTHRITIS
     Route: 058
     Dates: start: 2008

REACTIONS (7)
  - Muscular weakness [Unknown]
  - Temporal arteritis [Recovering/Resolving]
  - Hypoaesthesia [Not Recovered/Not Resolved]
  - Back disorder [Unknown]
  - Osteoporosis [Not Recovered/Not Resolved]
  - Thoracic vertebral fracture [Recovered/Resolved]
  - Scoliosis [Recovered/Resolved]

NARRATIVE: CASE EVENT DATE: 2015
